FAERS Safety Report 7586686-1 (Version None)
Quarter: 2011Q3

REPORT INFORMATION
  Report Type: 
  Country: None (occurrence: None)
  Receive Date: 20110701
  Receipt Date: 20110616
  Transmission Date: 20111222
  Serious: Yes (Hospitalization)
  Sender: FDA-Public Use
  Company Number: IT-BAYER-2011-052048

PATIENT
  Age: 79 Year
  Sex: Female

DRUGS (9)
  1. ATORVASTATIN CALCIUM [Concomitant]
  2. LERCADIP [Concomitant]
  3. JANUVIA [Concomitant]
  4. ASPIRIN [Suspect]
     Indication: PROPHYLAXIS
     Dosage: 100 MG, QD
     Route: 048
     Dates: start: 20101201, end: 20110414
  5. METFORMIN HCL [Concomitant]
  6. IRBESARTAN + HYDROCHLOROTHIAZIDE [Concomitant]
  7. FOSAVANCE [Concomitant]
  8. PROCORALAN [Concomitant]
  9. AXAGON [Concomitant]

REACTIONS (1)
  - ANAEMIA [None]
